FAERS Safety Report 8963908 (Version 1)
Quarter: 2012Q4

REPORT INFORMATION
  Report Type: 
  Country: IT (occurrence: IT)
  Receive Date: 20121214
  Receipt Date: 20121214
  Transmission Date: 20130627
  Serious: Yes (Other)
  Sender: FDA-Public Use
  Company Number: PHHY2012IT114753

PATIENT
  Sex: Female

DRUGS (2)
  1. SOTALOL [Suspect]
  2. HYDROCHLOROTHIAZIDE [Suspect]

REACTIONS (1)
  - Syncope [Recovering/Resolving]
